FAERS Safety Report 13647563 (Version 2)
Quarter: 2017Q2

REPORT INFORMATION
  Report Type: Spontaneous
  Country: ES (occurrence: ES)
  Receive Date: 20170613
  Receipt Date: 20170621
  Transmission Date: 20170830
  Serious: Yes (Life-Threatening, Hospitalization)
  Sender: FDA-Public Use
  Company Number: ES-TEVA-775902ISR

PATIENT
  Age: 79 Year
  Sex: Female

DRUGS (6)
  1. DIAZEPAM. [Concomitant]
     Active Substance: DIAZEPAM
     Indication: ANXIETY
     Dosage: 5 MILLIGRAM DAILY;
     Route: 048
     Dates: start: 20150323
  2. SINTROM [Interacting]
     Active Substance: ACENOCOUMAROL
     Indication: ATRIAL FIBRILLATION
     Route: 048
     Dates: start: 2008, end: 20151210
  3. PALEXIA [Concomitant]
     Active Substance: TAPENTADOL HYDROCHLORIDE
     Indication: SCIATICA
     Dosage: 100 MILLIGRAM DAILY;
     Route: 048
     Dates: start: 20120216
  4. LOSARTAN. [Concomitant]
     Active Substance: LOSARTAN
     Indication: HYPERTENSION
     Dosage: 50 MILLIGRAM DAILY;
     Route: 048
     Dates: start: 200603
  5. RYTMONORM 150MG COMPRIMIDOS RECUBIERTOS [Suspect]
     Active Substance: PROPAFENONE
     Indication: ATRIAL FIBRILLATION
     Dosage: 450 MILLIGRAM DAILY;
     Route: 048
     Dates: start: 200904
  6. PAROXETINE. [Suspect]
     Active Substance: PAROXETINE
     Indication: ANXIETY
     Dosage: 20 MILLIGRAM DAILY;
     Route: 048
     Dates: start: 200601

REACTIONS (2)
  - Drug interaction [Unknown]
  - Muscle haemorrhage [Recovering/Resolving]

NARRATIVE: CASE EVENT DATE: 20151210
